FAERS Safety Report 11102415 (Version 1)
Quarter: 2015Q2

REPORT INFORMATION
  Report Type: Spontaneous
  Country: US (occurrence: US)
  Receive Date: 20150511
  Receipt Date: 20150511
  Transmission Date: 20150821
  Serious: Yes (Hospitalization)
  Sender: FDA-Public Use
  Company Number: US-JNJFOC-20150423237

PATIENT
  Age: 42 Year
  Sex: Female

DRUGS (2)
  1. HALDOL DECANOATE [Suspect]
     Active Substance: HALOPERIDOL DECANOATE
     Indication: SCHIZOPHRENIA, PARANOID TYPE
     Route: 065
  2. RISPERDAL [Suspect]
     Active Substance: RISPERIDONE
     Indication: SCHIZOPHRENIA, PARANOID TYPE
     Route: 065

REACTIONS (3)
  - Hospitalisation [Unknown]
  - Treatment noncompliance [Unknown]
  - Extrapyramidal disorder [Unknown]
